FAERS Safety Report 8366603-7 (Version None)
Quarter: 2012Q2

REPORT INFORMATION
  Report Type: 
  Country: None (occurrence: None)
  Receive Date: 20120517
  Receipt Date: 20120511
  Transmission Date: 20120825
  Serious: Yes (Hospitalization)
  Sender: FDA-Public Use
  Company Number: PL-PFIZER INC-2009163304

PATIENT
  Age: 57 Year
  Sex: Female
  Weight: 49 kg

DRUGS (7)
  1. METOCARD [Concomitant]
     Dosage: UNK
     Route: 048
     Dates: start: 20080924
  2. MEGACE [Concomitant]
     Dosage: UNK
     Route: 048
     Dates: start: 20081216
  3. CALPEROS [Concomitant]
     Dosage: UNK
     Route: 048
     Dates: start: 19990101
  4. AXITINIB [Suspect]
     Indication: THYROID CANCER
     Dosage: 5 MG, 2X/DAY
     Route: 048
     Dates: start: 20080729, end: 20090128
  5. LEVOTHYROXINE SODIUM [Concomitant]
     Dosage: UNK
     Route: 048
     Dates: start: 19990101
  6. INDAPAMIDE [Concomitant]
     Dosage: UNK
     Route: 048
     Dates: start: 20081021
  7. ALFACALCIDOL [Concomitant]
     Dosage: UNK
     Route: 048
     Dates: start: 19990101

REACTIONS (3)
  - WEIGHT DECREASED [None]
  - FATIGUE [None]
  - ORAL PAIN [None]
